FAERS Safety Report 9169471 (Version 1)
Quarter: 2013Q1

REPORT INFORMATION
  Report Type: Spontaneous
  Country: US (occurrence: US)
  Receive Date: 20130318
  Receipt Date: 20130318
  Transmission Date: 20140127
  Serious: Yes (Disabling, Other)
  Sender: FDA-Public Use
  Company Number: US-MUTUAL PHARMACEUTICAL COMPANY, INC.-2010P1003500

PATIENT
  Sex: Female

DRUGS (2)
  1. METOCLOPRAMIDE [Suspect]
     Indication: GASTROOESOPHAGEAL REFLUX DISEASE
     Route: 048
     Dates: start: 200010, end: 201001
  2. REGLAN [Suspect]
     Indication: GASTROOESOPHAGEAL REFLUX DISEASE
     Route: 048
     Dates: start: 200010, end: 201001

REACTIONS (10)
  - Injury [None]
  - Deformity [None]
  - Activities of daily living impaired [None]
  - Tardive dyskinesia [None]
  - Extrapyramidal disorder [None]
  - Akathisia [None]
  - Incorrect drug administration duration [Unknown]
  - Pain [Unknown]
  - Emotional disorder [Unknown]
  - Quality of life decreased [Unknown]
